FAERS Safety Report 6521286-3 (Version None)
Quarter: 2009Q4

REPORT INFORMATION
  Report Type: 
  Country: None (occurrence: None)
  Receive Date: 20091224
  Receipt Date: 20091217
  Transmission Date: 20100525
  Serious: No
  Sender: FDA-Public Use
  Company Number: 20097457

PATIENT
  Sex: Female

DRUGS (1)
  1. LIORESAL [Suspect]
     Indication: MUSCLE SPASTICITY
     Dosage: 173 MCG, DAILY, INTRATHECAL
     Route: 037

REACTIONS (7)
  - DEVICE RELATED INFECTION [None]
  - HAEMATOMA [None]
  - IMPAIRED HEALING [None]
  - IMPLANT SITE EFFUSION [None]
  - OEDEMA [None]
  - SEROMA [None]
  - WOUND DEHISCENCE [None]
